FAERS Safety Report 7238514-1 (Version None)
Quarter: 2011Q1

REPORT INFORMATION
  Report Type: 
  Country: None (occurrence: None)
  Receive Date: 20110119
  Receipt Date: 20110119
  Transmission Date: 20110831
  Serious: Yes (Other)
  Sender: FDA-Public Use
  Company Number: None

PATIENT
  Sex: Male

DRUGS (1)
  1. SUTENT [Suspect]
     Indication: RENAL CELL CARCINOMA
     Dosage: 50MG DAILY X4W -OFF X2W PO
     Route: 048
     Dates: start: 20100610, end: 20110114

REACTIONS (6)
  - DYSPNOEA EXERTIONAL [None]
  - LETHARGY [None]
  - CHEST DISCOMFORT [None]
  - DYSPNOEA [None]
  - DISCOMFORT [None]
  - FEELING ABNORMAL [None]
